FAERS Safety Report 5442475-5 (Version None)
Quarter: 2007Q3

REPORT INFORMATION
  Report Type: 
  Country: None (occurrence: None)
  Receive Date: 20070830
  Receipt Date: 20070814
  Transmission Date: 20080115
  Serious: Yes (Hospitalization)
  Sender: FDA-Public Use
  Company Number: DSU-2007-00439

PATIENT
  Age: 69 Year
  Sex: Male
  Weight: 73.4827 kg

DRUGS (9)
  1. BENICAR [Suspect]
     Indication: DRUG USE FOR UNKNOWN INDICATION
     Dosage: 40 MG (40 MG, 1 IN 1 D), PER ORAL
     Route: 048
  2. CILOSTAZOL [Concomitant]
  3. FLEXERIL (CYCLOBENZAPRINE HYDROCHLORIDE) (CYCLOBENZAPRINE HYDROCHLORID [Concomitant]
  4. FOLIC ACID (FOLIC ACID) (FOLIC ACID) [Concomitant]
  5. MEPERIDINE (PETHIDINE) (PETHIDINE) [Concomitant]
  6. LORAZEPAM [Concomitant]
  7. METOPROLOL SUCCINATE [Concomitant]
  8. ACETAMINOPHEN [Concomitant]
  9. PANTOPRAZOLE SODIUM [Concomitant]

REACTIONS (1)
  - HYPONATRAEMIA [None]
